FAERS Safety Report 21883114 (Version 1)
Quarter: 2023Q1

REPORT INFORMATION
  Report Type: Other
  Country: US (occurrence: None)
  Receive Date: 20230119
  Receipt Date: 20230119
  Transmission Date: 20230418
  Serious: Yes (Death, Other)
  Sender: FDA-Public Use
  Company Number: US-ROCHE-3266739

PATIENT
  Sex: Male

DRUGS (1)
  1. CELLCEPT [Suspect]
     Active Substance: MYCOPHENOLATE MOFETIL
     Indication: Pulmonary hypertension
     Route: 065

REACTIONS (4)
  - Death [Fatal]
  - Cerebrovascular accident [Unknown]
  - Cardiovascular disorder [Unknown]
  - Off label use [Unknown]
